FAERS Safety Report 4590550-X (Version None)
Quarter: 2005Q1

REPORT INFORMATION
  Report Type: 
  Country: None (occurrence: None)
  Receive Date: 20050216
  Receipt Date: 20050203
  Transmission Date: 20050727
  Serious: Yes (Other)
  Sender: FDA-Public Use
  Company Number: 200510054BYL

PATIENT
  Age: 5 Month
  Sex: Female
  Weight: 6.2 kg

DRUGS (2)
  1. GAMIMUNE N 5% [Suspect]
     Indication: KAWASAKI'S DISEASE
     Dosage: 12.5 MG, INTRAVENOUS DRIP
     Route: 041
     Dates: start: 20041206, end: 20041207
  2. ASPIRIN [Suspect]
     Indication: KAWASAKI'S DISEASE
     Dosage: 180 MG, ORAL
     Route: 048
     Dates: start: 20041205, end: 20041210

REACTIONS (4)
  - ALANINE AMINOTRANSFERASE INCREASED [None]
  - ASPARTATE AMINOTRANSFERASE INCREASED [None]
  - HEPATIC FUNCTION ABNORMAL [None]
  - LIVER DISORDER [None]
